FAERS Safety Report 6387506 (Version 2)
Quarter: 2012Q4

REPORT INFORMATION
  Report Type: 
  Country: CA (occurrence: CA)
  Receive Date: 20070821
  Receipt Date: 20121107
  Transmission Date: 20130627
  Serious: Yes (Other)
  Sender: FDA-Public Use
  Company Number: PHHO2005CA11160

PATIENT
  Sex: Male

DRUGS (18)
  1. SANDOSTATIN LAR (PATIENT BASIS) [Suspect]
     Indication: POST GASTRIC SURGERY SYNDROME
     Dosage: 20mg every 4 weeks
     Route: 030
     Dates: start: 20000120
  2. SANDOSTATIN LAR (PATIENT BASIS) [Suspect]
     Dosage: 20 mg, QMO
  3. LIBRAX [Concomitant]
     Indication: ABDOMINAL PAIN
     Dosage: 10 mg, TID
     Route: 048
  4. COTAZYM [Concomitant]
     Dosage: 8 TID-QIT
     Route: 048
  5. DILAUDID [Concomitant]
     Dosage: 4mg every 4 hours
  6. HYDROMORPH CONTIN [Concomitant]
     Dosage: 12 mg every 12 hours
  7. LOSEC [Concomitant]
     Dosage: 20 mg, QD
     Route: 048
  8. BUSCOPAN [Concomitant]
  9. ATIVAN [Concomitant]
     Dosage: 2 mg, QHS
     Route: 048
  10. ELAVIL [Concomitant]
  11. ZOCOR [Concomitant]
  12. VIAGRA [Concomitant]
     Dosage: 100 mg, PRN
  13. NOVASEN [Concomitant]
  14. ZOPICLONE [Concomitant]
     Dosage: 7.5mh
  15. SIMVASTATIN [Concomitant]
  16. LIPITOR                                 /NET/ [Concomitant]
  17. GABAPENTIN [Concomitant]
     Dosage: 800 mg, TID
  18. ASDOL [Concomitant]
     Dosage: 325 mg, QD

REACTIONS (19)
  - Cerebrovascular accident [Unknown]
  - Headache [Unknown]
  - Weight increased [Unknown]
  - Constipation [Unknown]
  - Abdominal pain [Unknown]
  - Pain [Not Recovered/Not Resolved]
  - Back pain [Unknown]
  - Gait disturbance [Unknown]
  - Injection site reaction [Unknown]
  - Gastrointestinal pain [Unknown]
  - Tachycardia [Unknown]
  - Injection site pain [Unknown]
  - Diarrhoea [Unknown]
  - Hypoglycaemia [Unknown]
  - Hyperglycaemia [Unknown]
  - Insomnia [Unknown]
  - Erectile dysfunction [Unknown]
  - Blood pressure decreased [Unknown]
  - Decreased appetite [Unknown]
